FAERS Safety Report 16479252 (Version 1)
Quarter: 2019Q2

REPORT INFORMATION
  Report Type: Spontaneous
  Country: US (occurrence: US)
  Receive Date: 20190626
  Receipt Date: 20190626
  Transmission Date: 20190711
  Serious: No
  Sender: FDA-Public Use
  Company Number: US-SAOL THERAPEUTICS-2019SAO00233

PATIENT
  Age: 70 Year
  Sex: Female

DRUGS (1)
  1. LIORESAL [Suspect]
     Active Substance: BACLOFEN
     Indication: MUSCLE SPASTICITY
     Dosage: 399.7 ?G, \DAY
     Route: 037

REACTIONS (4)
  - Muscle rigidity [Unknown]
  - Pain [Unknown]
  - Muscle spasms [Unknown]
  - Device infusion issue [Unknown]

NARRATIVE: CASE EVENT DATE: 2019
